FAERS Safety Report 10357080 (Version 3)
Quarter: 2014Q4

REPORT INFORMATION
  Report Type: Spontaneous
  Country: DK (occurrence: IT)
  Receive Date: 20140801
  Receipt Date: 20141105
  Transmission Date: 20150528
  Serious: Yes (Disabling)
  Sender: FDA-Public Use
  Company Number: IT-FRI-1000069493

PATIENT
  Age: 80 Year
  Sex: Male

DRUGS (5)
  1. ESCITALOPRAM [Suspect]
     Active Substance: ESCITALOPRAM OXALATE
     Indication: DEPRESSION
     Dosage: OVERDOSE: 40 MG DAILY
     Route: 048
     Dates: start: 2013, end: 201406
  2. ESCITALOPRAM [Suspect]
     Active Substance: ESCITALOPRAM OXALATE
     Dosage: 20 MG
     Route: 048
  3. ESCITALOPRAM [Suspect]
     Active Substance: ESCITALOPRAM OXALATE
     Indication: DEPRESSION
     Dosage: 20 MG
     Route: 048
     Dates: start: 2010, end: 2013
  4. TAVOR [Suspect]
     Active Substance: LORAZEPAM
     Indication: DEPRESSION
     Dosage: 1.5 MG
     Route: 048
     Dates: start: 2010
  5. TAVOR [Suspect]
     Active Substance: LORAZEPAM
     Dosage: 2 UNIT DOSE PER DAY
     Route: 048

REACTIONS (2)
  - Visual acuity reduced [Recovering/Resolving]
  - Prescribed overdose [Not Recovered/Not Resolved]

NARRATIVE: CASE EVENT DATE: 201406
